FAERS Safety Report 14031136 (Version 2)
Quarter: 2017Q4

REPORT INFORMATION
  Report Type: Report from Study
  Country: BR (occurrence: BR)
  Receive Date: 20171002
  Receipt Date: 20171006
  Transmission Date: 20180321
  Serious: Yes (Death)
  Sender: FDA-Public Use
  Company Number: PHHY2017BR144044

PATIENT
  Age: 68 Year
  Sex: Female
  Weight: 80 kg

DRUGS (3)
  1. CARVEDILOL. [Concomitant]
     Active Substance: CARVEDILOL
     Indication: CARDIAC DISORDER
     Dosage: UNK UNK, QD
     Route: 048
     Dates: end: 20170922
  2. ENTRESTO [Suspect]
     Active Substance: SACUBITRIL\VALSARTAN
     Indication: CARDIAC DISORDER
     Dosage: UNK UNK, BID
     Route: 048
     Dates: end: 20170922
  3. ALDACTONE [Concomitant]
     Active Substance: SPIRONOLACTONE
     Indication: CARDIAC DISORDER
     Dosage: UNK UNK, QD
     Route: 048
     Dates: end: 20170922

REACTIONS (4)
  - Cerebrovascular accident [Fatal]
  - Arterial occlusive disease [Unknown]
  - Influenza [Unknown]
  - Product use in unapproved indication [Unknown]

NARRATIVE: CASE EVENT DATE: 201709
